FAERS Safety Report 9116168 (Version 2)
Quarter: 2013Q2

REPORT INFORMATION
  Report Type: Report from Study
  Country: FR (occurrence: FR)
  Receive Date: 20130225
  Receipt Date: 20130404
  Transmission Date: 20140414
  Serious: Yes (Death)
  Sender: FDA-Public Use
  Company Number: FR-ACTELION-A-CH2013-79517

PATIENT
  Age: 48 Year
  Sex: Female

DRUGS (6)
  1. TRACLEER [Suspect]
     Indication: PRODUCT USED FOR UNKNOWN INDICATION
     Dosage: 125 MG, BID
     Route: 048
     Dates: start: 20100225, end: 20120313
  2. TRACLEER [Suspect]
     Dosage: 62.5 MG, BID
     Route: 048
     Dates: start: 20100128, end: 20100224
  3. MOPRAL [Concomitant]
     Dosage: UNK
     Dates: start: 20051007
  4. TRIATEC [Concomitant]
     Dosage: UNK
     Dates: start: 20050113
  5. CORTANCYL [Concomitant]
     Dosage: UNK
     Dates: start: 20050113
  6. EFFEXOR [Concomitant]
     Dosage: UNK
     Dates: start: 20050224

REACTIONS (3)
  - Respiratory distress [Fatal]
  - Cardiac tamponade [Fatal]
  - Cardiac arrest [Fatal]
